FAERS Safety Report 23238373 (Version 1)
Quarter: 2023Q4

REPORT INFORMATION
  Report Type: Other
  Country: NI (occurrence: NI)
  Receive Date: 20231129
  Receipt Date: 20231129
  Transmission Date: 20240109
  Serious: Yes (Other)
  Sender: FDA-Public Use
  Company Number: NI-TOLMAR, INC.-23NI044633

PATIENT
  Age: 8 Year
  Sex: Female

DRUGS (5)
  1. ELIGARD [Suspect]
     Active Substance: LEUPROLIDE ACETATE
     Indication: Precocious puberty
     Dosage: 22.5 MILLIGRAM, Q 3 MONTH
     Route: 058
     Dates: start: 20230809
  2. ELIGARD [Suspect]
     Active Substance: LEUPROLIDE ACETATE
     Indication: Precocious puberty
     Dosage: UNK
  3. METHYLPHENIDATE [Concomitant]
     Active Substance: METHYLPHENIDATE
     Indication: Product used for unknown indication
     Dosage: 5 MILLIGRAM, MORNING
  4. METHYLPHENIDATE [Concomitant]
     Active Substance: METHYLPHENIDATE
     Dosage: 10 MILLIGRAM, EVENING
  5. LUVOX [LEVOFLOXACIN HEMIHYDRATE] [Concomitant]
     Indication: Product used for unknown indication
     Dosage: 50 MILLIGRAM, QD

REACTIONS (2)
  - Anxiety [Not Recovered/Not Resolved]
  - Skin abrasion [Not Recovered/Not Resolved]

NARRATIVE: CASE EVENT DATE: 20230825
